FAERS Safety Report 9960211 (Version 1)
Quarter: 2014Q1

REPORT INFORMATION
  Report Type: Report from Study
  Country: US (occurrence: US)
  Receive Date: 20140305
  Receipt Date: 20140305
  Transmission Date: 20141002
  Serious: No
  Sender: FDA-Public Use
  Company Number: US-ABBVIE-13P-163-1101789-00

PATIENT
  Age: 79 Year
  Sex: Male

DRUGS (4)
  1. HUMIRA [Suspect]
     Indication: PSORIATIC ARTHROPATHY
     Dates: start: 2011
  2. FOLIC ACID [Concomitant]
  3. DICYCLOMINE [Concomitant]
  4. LEXAPRO [Concomitant]

REACTIONS (1)
  - Upper respiratory tract infection [Recovering/Resolving]
